FAERS Safety Report 9060030 (Version 1)
Quarter: 2013Q1

REPORT INFORMATION
  Report Type: Spontaneous
  Country: US (occurrence: None)
  Receive Date: 20130207
  Receipt Date: 20130207
  Transmission Date: 20140127
  Serious: Yes (Other)
  Sender: FDA-Public Use
  Company Number: None

PATIENT
  Age: 45 Year
  Sex: Male
  Weight: 86.18 kg

DRUGS (2)
  1. ANDROGEL GEL [Suspect]
     Indication: BLOOD TESTOSTERONE DECREASED
     Dosage: 5 GRAMS ON EACH ARM 1 TIME A DAY ON ARM
     Dates: start: 2011, end: 20120622
  2. ANDROGEL GEL [Suspect]
     Indication: BLOOD TESTOSTERONE DECREASED
     Dosage: 5 GRAMS ON EACH ARM 1 TIME A DAY ON ARM
     Dates: start: 2011, end: 20120622

REACTIONS (2)
  - Application site mass [None]
  - Pain [None]
